FAERS Safety Report 6316711-7 (Version None)
Quarter: 2009Q3

REPORT INFORMATION
  Report Type: 
  Country: None (occurrence: None)
  Receive Date: 20090820
  Receipt Date: 20090818
  Transmission Date: 20100115
  Serious: Yes (Hospitalization)
  Sender: FDA-Public Use
  Company Number: US-BRISTOL-MYERS SQUIBB COMPANY-14745293

PATIENT
  Age: 61 Year
  Sex: Male
  Weight: 56 kg

DRUGS (7)
  1. TAXOL [Suspect]
     Indication: NON-SMALL CELL LUNG CANCER
     Route: 042
     Dates: start: 20090612, end: 20090724
  2. CARBOPLATIN [Suspect]
     Indication: NON-SMALL CELL LUNG CANCER
     Route: 042
     Dates: start: 20090612, end: 20090724
  3. CP-751,871 [Suspect]
     Indication: NON-SMALL CELL LUNG CANCER
     Route: 042
     Dates: start: 20090612, end: 20090724
  4. ZOMETA [Concomitant]
     Dates: start: 20090612
  5. CELEXA [Concomitant]
     Dates: start: 20090626
  6. PEPCID AC [Concomitant]
     Dates: start: 20090707
  7. COMPAZINE [Concomitant]
     Dates: start: 20090612

REACTIONS (5)
  - CONFUSIONAL STATE [None]
  - DECREASED APPETITE [None]
  - DEHYDRATION [None]
  - HYPERCALCAEMIA [None]
  - LETHARGY [None]
